FAERS Safety Report 24844276 (Version 1)
Quarter: 2025Q1

REPORT INFORMATION
  Report Type: Spontaneous
  Country: US (occurrence: US)
  Receive Date: 20250115
  Receipt Date: 20250115
  Transmission Date: 20250409
  Serious: Yes (Hospitalization, Other)
  Sender: AUROBINDO
  Company Number: US-AUROBINDO-AUR-APL-2025-001766

PATIENT
  Age: 62 Year
  Sex: Female

DRUGS (3)
  1. TAMOXIFEN [Suspect]
     Active Substance: TAMOXIFEN
     Indication: Hereditary haemorrhagic telangiectasia
     Route: 065
     Dates: end: 202302
  2. OCTREOTIDE [Suspect]
     Active Substance: OCTREOTIDE
     Indication: Hereditary haemorrhagic telangiectasia
     Route: 065
  3. BEVACIZUMAB [Concomitant]
     Active Substance: BEVACIZUMAB
     Indication: Hereditary haemorrhagic telangiectasia
     Route: 065

REACTIONS (1)
  - Drug ineffective [Unknown]
